FAERS Safety Report 21446700 (Version 1)
Quarter: 2022Q4

REPORT INFORMATION
  Report Type: Spontaneous
  Country: US (occurrence: None)
  Receive Date: 20221011
  Receipt Date: 20221011
  Transmission Date: 20230113
  Serious: Yes (Hospitalization)
  Sender: FDA-Public Use
  Company Number: None

PATIENT
  Age: 75 Year
  Sex: Male
  Weight: 117 kg

DRUGS (2)
  1. APIXABAN [Suspect]
     Active Substance: APIXABAN
     Indication: Atrial fibrillation
     Dosage: 5 MG BID PO?
     Route: 048
     Dates: start: 20170921
  2. APIXABAN [Suspect]
     Active Substance: APIXABAN
     Dosage: 5 MG BID PO
     Route: 048
     Dates: start: 20170921

REACTIONS (3)
  - Haemoglobin decreased [None]
  - Gastric haemorrhage [None]
  - Gastrointestinal angiectasia [None]

NARRATIVE: CASE EVENT DATE: 20220104
